FAERS Safety Report 5774319-6 (Version None)
Quarter: 2008Q2

REPORT INFORMATION
  Report Type: 
  Country: None (occurrence: None)
  Receive Date: 20080616
  Receipt Date: 20080604
  Transmission Date: 20081010
  Serious: Yes (Other)
  Sender: FDA-Public Use
  Company Number: PHHY2008JP09936

PATIENT
  Age: 82 Year
  Sex: Female

DRUGS (4)
  1. NEORAL [Suspect]
     Indication: INTERSTITIAL LUNG DISEASE
     Dosage: 125 MG, UNK
     Route: 048
     Dates: start: 20080521, end: 20080603
  2. PREDONINE [Suspect]
     Indication: INTERSTITIAL LUNG DISEASE
     Dosage: 40 MG, UNK
     Route: 048
     Dates: start: 20080502, end: 20080520
  3. PREDONINE [Suspect]
     Dosage: 20 MG, UNK
     Route: 048
     Dates: start: 20080521, end: 20080603
  4. PREDONINE [Suspect]
     Dosage: 10 MG, UNK
     Route: 048
     Dates: start: 20080604

REACTIONS (5)
  - CONCOMITANT DISEASE AGGRAVATED [None]
  - DISORIENTATION [None]
  - IRRITABILITY [None]
  - PSYCHIATRIC SYMPTOM [None]
  - SOLILOQUY [None]
